FAERS Safety Report 8440485-7 (Version None)
Quarter: 2012Q2

REPORT INFORMATION
  Report Type: 
  Country: None (occurrence: None)
  Receive Date: 20120615
  Receipt Date: 20120613
  Transmission Date: 20120825
  Serious: Yes (Other)
  Sender: FDA-Public Use
  Company Number: SE-GLAXOSMITHKLINE-B0804949A

PATIENT
  Sex: Female

DRUGS (6)
  1. BETAPRED [Concomitant]
     Indication: ASTHMA
     Dosage: .5MG AS REQUIRED
     Route: 065
     Dates: start: 20010404
  2. FORMOTEROL FUMARATE [Concomitant]
     Indication: ASTHMA
     Dosage: 1PUFF TWICE PER DAY
     Route: 055
     Dates: start: 20010820
  3. OMEPRAZOLE [Concomitant]
     Indication: GASTRIC DISORDER
     Route: 065
     Dates: start: 20040518
  4. RISEDRONATE SODIUM [Concomitant]
     Indication: OSTEOPOROSIS
     Dates: start: 20120315
  5. FLUTICASONE PROPIONATE/SALMETEROL [Suspect]
     Indication: ASTHMA
     Dosage: 1PUFF TWICE PER DAY
     Route: 055
     Dates: start: 20010820
  6. SINGULAIR [Concomitant]
     Indication: ASTHMA
     Dates: start: 20000309

REACTIONS (5)
  - ADRENAL NEOPLASM [None]
  - DEPRESSION [None]
  - OSTEOPOROSIS [None]
  - ABDOMINAL PAIN UPPER [None]
  - FATIGUE [None]
